FAERS Safety Report 7432363-7 (Version None)
Quarter: 2011Q2

REPORT INFORMATION
  Report Type: 
  Country: None (occurrence: None)
  Receive Date: 20110422
  Receipt Date: 20110414
  Transmission Date: 20111010
  Serious: Yes (Death, Other)
  Sender: FDA-Public Use
  Company Number: GB-AMGEN-GBRSP2011019794

PATIENT
  Age: 34 Year
  Sex: Female

DRUGS (8)
  1. NEUPOGEN [Suspect]
  2. FLUDARA                            /01004602/ [Suspect]
     Indication: CHLOROMA
  3. CYCLOPHOSPHAMIDE [Suspect]
     Indication: BONE MARROW CONDITIONING REGIMEN
  4. CYTARABINE [Suspect]
     Indication: CHLOROMA
  5. IDARUBICIN HCL [Suspect]
     Indication: CHLOROMA
  6. CAMPATH [Suspect]
     Indication: BONE MARROW CONDITIONING REGIMEN
  7. CYCLOSPORINE [Concomitant]
     Indication: PROPHYLAXIS AGAINST GRAFT VERSUS HOST DISEASE
  8. METHOTREXATE [Concomitant]
     Indication: PROPHYLAXIS AGAINST GRAFT VERSUS HOST DISEASE

REACTIONS (5)
  - CYTOMEGALOVIRUS CHORIORETINITIS [None]
  - NEUTROPENIC SEPSIS [None]
  - TRANSPLANT FAILURE [None]
  - PNEUMONIA FUNGAL [None]
  - APLASIA [None]
